FAERS Safety Report 16920921 (Version 4)
Quarter: 2020Q4

REPORT INFORMATION
  Report Type: Spontaneous
  Country: JP (occurrence: JP)
  Receive Date: 20191015
  Receipt Date: 20201002
  Transmission Date: 20210113
  Serious: Yes (Hospitalization, Disabling, Other)
  Sender: FDA-Public Use
  Company Number: JP-BRISTOL-MYERS SQUIBB COMPANY-BMS-2019-035183

PATIENT
  Age: 73 Year
  Sex: Male
  Weight: 61.6 kg

DRUGS (15)
  1. FEBURIC [Concomitant]
     Active Substance: FEBUXOSTAT
     Indication: PRODUCT USED FOR UNKNOWN INDICATION
     Dosage: UNK
     Route: 065
  2. OPDIVO [Suspect]
     Active Substance: NIVOLUMAB
     Dosage: 240 MILLIGRAM
     Route: 065
  3. VOTRIENT [Concomitant]
     Active Substance: PAZOPANIB HYDROCHLORIDE
     Dosage: 600 MILLIGRAM
     Route: 048
     Dates: start: 20191113
  4. URSO [Concomitant]
     Active Substance: URSODIOL
     Indication: PRODUCT USED FOR UNKNOWN INDICATION
     Dosage: UNK
     Route: 065
  5. VOTRIENT [Concomitant]
     Active Substance: PAZOPANIB HYDROCHLORIDE
     Indication: PRODUCT USED FOR UNKNOWN INDICATION
     Dosage: 800 MILLIGRAM
     Route: 048
     Dates: start: 20191023
  6. REBAMIPIDE [Concomitant]
     Active Substance: REBAMIPIDE
     Indication: PRODUCT USED FOR UNKNOWN INDICATION
     Dosage: UNK
     Route: 065
  7. YERVOY [Suspect]
     Active Substance: IPILIMUMAB
     Indication: METASTATIC RENAL CELL CARCINOMA
     Dosage: 1 MILLIGRAM/KILOGRAM
     Route: 041
     Dates: start: 20190305, end: 20190327
  8. OPDIVO [Suspect]
     Active Substance: NIVOLUMAB
     Indication: METASTATIC RENAL CELL CARCINOMA
     Dosage: 240 MILLIGRAM
     Route: 041
     Dates: start: 20190305, end: 20190327
  9. VOTRIENT [Concomitant]
     Active Substance: PAZOPANIB HYDROCHLORIDE
     Dosage: 400 MILLIGRAM
     Route: 048
     Dates: start: 20191225
  10. MERCAZOLE [THIAMAZOLE] [Concomitant]
     Active Substance: METHIMAZOLE
     Indication: PRODUCT USED FOR UNKNOWN INDICATION
     Dosage: 5 MILLIGRAM, QD
     Route: 048
     Dates: start: 20161216
  11. XARELTO [Concomitant]
     Active Substance: RIVAROXABAN
     Indication: PRODUCT USED FOR UNKNOWN INDICATION
     Route: 065
  12. OPDIVO [Suspect]
     Active Substance: NIVOLUMAB
     Dosage: 240 MILLIGRAM
     Route: 041
     Dates: start: 20190605, end: 20190719
  13. FUROSEMIDE. [Concomitant]
     Active Substance: FUROSEMIDE
     Indication: PRODUCT USED FOR UNKNOWN INDICATION
     Dosage: UNK
     Route: 065
  14. BISOPROLOL [Concomitant]
     Active Substance: BISOPROLOL
     Indication: PRODUCT USED FOR UNKNOWN INDICATION
     Route: 065
  15. LOXOPROFEN [Concomitant]
     Active Substance: LOXOPROFEN
     Indication: PRODUCT USED FOR UNKNOWN INDICATION
     Dosage: UNK
     Route: 065

REACTIONS (8)
  - Metastases to lung [Unknown]
  - Thyroiditis [Not Recovered/Not Resolved]
  - Basal ganglia infarction [Unknown]
  - Malaise [Unknown]
  - Basedow^s disease [Recovering/Resolving]
  - Interstitial lung disease [Recovered/Resolved]
  - Secondary adrenocortical insufficiency [Not Recovered/Not Resolved]
  - Eosinophil count increased [Unknown]

NARRATIVE: CASE EVENT DATE: 20190307
